FAERS Safety Report 11403111 (Version 1)
Quarter: 2015Q3

REPORT INFORMATION
  Report Type: Spontaneous
  Country: FR (occurrence: FR)
  Receive Date: 20150821
  Receipt Date: 20150821
  Transmission Date: 20151125
  Serious: Yes (Death)
  Sender: FDA-Public Use
  Company Number: FR-BAYER-2015-398263

PATIENT
  Age: 81 Year
  Sex: Female

DRUGS (2)
  1. MOXIFLOXACIN IV [Suspect]
     Active Substance: MOXIFLOXACIN
     Indication: ENDOCARDITIS BACTERIAL
     Dosage: 400 MG, BID
  2. COTRIMOXAZOL [Concomitant]
     Active Substance: SULFAMETHOXAZOLE\TRIMETHOPRIM
     Indication: ENDOCARDITIS BACTERIAL
     Dosage: 800 MG, QID

REACTIONS (3)
  - Pulmonary embolism [Fatal]
  - Off label use [None]
  - Drug ineffective for unapproved indication [None]
